FAERS Safety Report 24883986 (Version 1)
Quarter: 2025Q1

REPORT INFORMATION
  Report Type: Spontaneous
  Country: US (occurrence: None)
  Receive Date: 20250123
  Receipt Date: 20250123
  Transmission Date: 20250408
  Serious: Yes (Hospitalization)
  Sender: FDA-CTU
  Company Number: None

PATIENT
  Age: 72 Year
  Sex: Male

DRUGS (3)
  1. HYDROXYZINE DIHYDROCHLORIDE [Suspect]
     Active Substance: HYDROXYZINE DIHYDROCHLORIDE
     Indication: Anxiety
     Dosage: FREQUENCY : 4 TIMES A DAY;?
     Route: 048
     Dates: end: 20241230
  2. TRAZODONE HCL [Suspect]
     Active Substance: TRAZODONE HYDROCHLORIDE
     Dosage: FREQUENCY : AT BEDTIME;?
     Route: 048
     Dates: end: 20241230
  3. GABAPENTIN [Concomitant]
     Active Substance: GABAPENTIN

REACTIONS (5)
  - Myoclonus [None]
  - Encephalopathy [None]
  - Metabolic disorder [None]
  - Toxicity to various agents [None]
  - Therapy cessation [None]

NARRATIVE: CASE EVENT DATE: 20241230
